FAERS Safety Report 8265705-3 (Version None)
Quarter: 2012Q2

REPORT INFORMATION
  Report Type: 
  Country: None (occurrence: None)
  Receive Date: 20120406
  Receipt Date: 20120328
  Transmission Date: 20120825
  Serious: Yes (Other)
  Sender: FDA-Public Use
  Company Number: US-ABBOTT-12P-163-0919648-00

PATIENT
  Sex: Female

DRUGS (2)
  1. HUMIRA [Suspect]
     Indication: RHEUMATOID ARTHRITIS
     Route: 058
     Dates: start: 20111001, end: 20111101
  2. HUMIRA [Suspect]
     Dates: start: 20120201

REACTIONS (4)
  - PRURITUS [None]
  - LIVER INJURY [None]
  - RESTLESS LEGS SYNDROME [None]
  - PARAESTHESIA [None]
